FAERS Safety Report 18002034 (Version 1)
Quarter: 2020Q3

REPORT INFORMATION
  Report Type: Spontaneous
  Country: NL (occurrence: NL)
  Receive Date: 20200709
  Receipt Date: 20200709
  Transmission Date: 20201103
  Serious: Yes (Other)
  Sender: FDA-Public Use
  Company Number: NL-MYLANLABS-2020M1061225

PATIENT
  Age: 63 Year
  Sex: Male
  Weight: 75 kg

DRUGS (6)
  1. ATORVASTATIN [Suspect]
     Active Substance: ATORVASTATIN
     Indication: ISCHAEMIC CARDIOMYOPATHY
     Dosage: 1X
     Dates: start: 20200410, end: 20200528
  2. FUROSEMIDE. [Concomitant]
     Active Substance: FUROSEMIDE
     Dosage: TABLET, 40 MILLIGRAM
  3. FERROFUMARAAT [Concomitant]
     Dosage: 3 DD 200 MG
  4. METOPROLOL. [Concomitant]
     Active Substance: METOPROLOL
     Dosage: TABLET, 100 MILLIGRAM
  5. ENTRESTO [Concomitant]
     Active Substance: SACUBITRIL\VALSARTAN
     Dosage: 2DD1
  6. ACENOCOUMAROL [Concomitant]
     Active Substance: ACENOCOUMAROL
     Dosage: TABLET, 1 MG

REACTIONS (5)
  - Headache [Unknown]
  - Dizziness [Unknown]
  - Malaise [Unknown]
  - Myalgia [Unknown]
  - Hepatitis [Recovered/Resolved]

NARRATIVE: CASE EVENT DATE: 20200521
